FAERS Safety Report 18650820 (Version 2)
Quarter: 2020Q4

REPORT INFORMATION
  Report Type: Spontaneous
  Country: US (occurrence: US)
  Receive Date: 20201223
  Receipt Date: 20201226
  Transmission Date: 20210114
  Serious: Yes (Other)
  Sender: FDA-Public Use
  Company Number: US-JNJFOC-20201231558

PATIENT
  Age: 19 Year
  Sex: Female
  Weight: 64.92 kg

DRUGS (1)
  1. JBABY BABY POWDER UNSPECIFIED (ZINC OXIDE) [Suspect]
     Active Substance: ZINC OXIDE
     Indication: DRY SKIN PROPHYLAXIS
     Dosage: APPLIED LIBERALLY. TWICE DAILY.
     Route: 061
     Dates: start: 19630216

REACTIONS (2)
  - Adverse event [Unknown]
  - Anxiety [Not Recovered/Not Resolved]

NARRATIVE: CASE EVENT DATE: 198205
